FAERS Safety Report 9902172 (Version 2)
Quarter: 2014Q2

REPORT INFORMATION
  Report Type: Report from Study
  Country: US (occurrence: US)
  Receive Date: 20140217
  Receipt Date: 20140428
  Transmission Date: 20141212
  Serious: No
  Sender: FDA-Public Use
  Company Number: US-JNJFOC-20140205838

PATIENT
  Age: 74 Year
  Sex: Female

DRUGS (13)
  1. REMICADE [Suspect]
     Indication: RHEUMATOID ARTHRITIS
     Route: 042
     Dates: start: 2013
  2. METFORMIN [Concomitant]
     Indication: DIABETES MELLITUS
     Route: 065
  3. METOPROLOL [Concomitant]
     Indication: CARDIAC DISORDER
     Route: 065
  4. SYNTHROID [Concomitant]
     Indication: THYROID DISORDER
     Route: 065
  5. ISONIAZID [Concomitant]
     Indication: TUBERCULOSIS
     Route: 065
  6. DIOVAN [Concomitant]
     Indication: CARDIAC DISORDER
     Route: 065
  7. PREDNISONE [Concomitant]
     Indication: ARTHRITIS
     Route: 065
  8. ADVAIR DISKUS [Concomitant]
     Indication: CHRONIC OBSTRUCTIVE PULMONARY DISEASE
     Route: 065
  9. SPIRIVA [Concomitant]
     Indication: CHRONIC OBSTRUCTIVE PULMONARY DISEASE
     Route: 065
  10. ALBUTEROL [Concomitant]
     Indication: CHRONIC OBSTRUCTIVE PULMONARY DISEASE
     Route: 065
  11. FOLIC ACID [Concomitant]
     Route: 065
  12. VITAMIN B6 [Concomitant]
     Route: 065
  13. VITAMIN B12 [Concomitant]
     Route: 065

REACTIONS (2)
  - Back pain [Recovered/Resolved]
  - Tremor [Recovered/Resolved]
